FAERS Safety Report 6832302-3 (Version None)
Quarter: 2010Q3

REPORT INFORMATION
  Report Type: 
  Country: None (occurrence: None)
  Receive Date: 20100712
  Receipt Date: 20100702
  Transmission Date: 20110219
  Serious: Yes (Hospitalization, Other)
  Sender: FDA-Public Use
  Company Number: JP-ABBOTT-10P-087-0636513-00

PATIENT
  Sex: Male
  Weight: 54.6 kg

DRUGS (14)
  1. HUMIRA [Suspect]
     Indication: RHEUMATOID ARTHRITIS
     Route: 058
     Dates: start: 20090630, end: 20090714
  2. HUMIRA [Suspect]
     Route: 058
     Dates: start: 20091106, end: 20091106
  3. METHOTREXATE [Concomitant]
     Indication: RHEUMATOID ARTHRITIS
     Dosage: 6 MG WEEKLY
     Dates: start: 20090516, end: 20090728
  4. METHOTREXATE [Concomitant]
     Dosage: 6MG WEEKLY
     Dates: start: 20091116
  5. DEXAMETHASONE PALMITATE [Concomitant]
     Indication: RHEUMATOID ARTHRITIS
     Dosage: 2.5 MG EVERY 2 WEEKS
     Route: 042
     Dates: start: 20090522
  6. PREDNISOLONE [Concomitant]
     Indication: RHEUMATOID ARTHRITIS
     Dosage: 10 MG DAILY
     Route: 048
     Dates: start: 20090516, end: 20090714
  7. PREDNISOLONE [Concomitant]
     Dosage: 7.5 MG DAILY
     Route: 048
     Dates: start: 20090714, end: 20090811
  8. PREDNISOLONE [Concomitant]
     Dosage: 10 MG DAILY
     Route: 048
     Dates: start: 20091116
  9. DICLOFENAC SODIUM [Concomitant]
     Indication: RHEUMATOID ARTHRITIS
     Dosage: 75 MG DAILY
     Dates: start: 20090516, end: 20091127
  10. TEPRENONE [Concomitant]
     Indication: PROPHYLAXIS AGAINST GASTROINTESTINAL ULCER
     Dosage: 100 MG DAILY
     Dates: start: 20090516, end: 20091127
  11. RABEPRAZOLE SODIUM [Concomitant]
     Indication: PROPHYLAXIS AGAINST GASTROINTESTINAL ULCER
     Dosage: 10 MG DAILY
     Dates: start: 20090714, end: 20091127
  12. CETIRIZINE HYDROCHLORIDE [Concomitant]
     Indication: DERMATITIS ALLERGIC
     Dosage: 10 MG DAILY
     Dates: start: 20090630, end: 20091113
  13. CETIRIZINE HYDROCHLORIDE [Concomitant]
     Indication: PROPHYLAXIS
  14. ETIZOLAM [Concomitant]
     Indication: INSOMNIA
     Dosage: 2 MG DAILY
     Dates: start: 20090630, end: 20091113

REACTIONS (2)
  - DUODENAL STENOSIS [None]
  - NASOPHARYNGITIS [None]
